FAERS Safety Report 7650085-4 (Version None)
Quarter: 2011Q3

REPORT INFORMATION
  Report Type: 
  Country: None (occurrence: None)
  Receive Date: 20110802
  Receipt Date: 20110719
  Transmission Date: 20111222
  Serious: Yes (Other)
  Sender: FDA-Public Use
  Company Number: CN-JNJFOC-20110710672

PATIENT
  Sex: Male

DRUGS (2)
  1. NICOTINE [Suspect]
     Route: 062
  2. NICOTINE [Suspect]
     Indication: PRODUCT USED FOR UNKNOWN INDICATION
     Route: 062
     Dates: start: 20110716, end: 20110718

REACTIONS (3)
  - PAIN IN EXTREMITY [None]
  - POOR QUALITY SLEEP [None]
  - DIZZINESS [None]
